FAERS Safety Report 19783814 (Version 1)
Quarter: 2021Q3

REPORT INFORMATION
  Report Type: Spontaneous
  Country: US (occurrence: US)
  Receive Date: 20210902
  Receipt Date: 20210902
  Transmission Date: 20211014
  Serious: Yes (Other)
  Sender: FDA-Public Use
  Company Number: None

PATIENT
  Age: 74 Year
  Sex: Male
  Weight: 92.4 kg

DRUGS (7)
  1. ENOXAPARIN [Concomitant]
     Active Substance: ENOXAPARIN
     Dates: start: 20210817
  2. DILTIAZEM. [Concomitant]
     Active Substance: DILTIAZEM
     Dates: start: 20210829
  3. IOHEXOL [Concomitant]
     Active Substance: IOHEXOL
     Dates: start: 20210829, end: 20210829
  4. DEXAMETHASONE. [Concomitant]
     Active Substance: DEXAMETHASONE
     Dates: start: 20210817, end: 20210826
  5. METOPROLOL. [Concomitant]
     Active Substance: METOPROLOL
     Dates: start: 20210824, end: 20210829
  6. BARICITINIB. [Suspect]
     Active Substance: BARICITINIB
     Indication: COVID-19
     Route: 048
     Dates: start: 20210819, end: 20210830
  7. CALCIUM CARBONATE. [Concomitant]
     Active Substance: CALCIUM CARBONATE
     Dates: start: 20210817

REACTIONS (5)
  - Pulmonary embolism [None]
  - Product dispensing error [None]
  - Sinus bradycardia [None]
  - Supraventricular tachycardia [None]
  - Atrial thrombosis [None]

NARRATIVE: CASE EVENT DATE: 20210829
